FAERS Safety Report 8407984-5 (Version None)
Quarter: 2012Q2

REPORT INFORMATION
  Report Type: 
  Country: None (occurrence: None)
  Receive Date: 20120529
  Receipt Date: 20050426
  Transmission Date: 20120825
  Serious: Yes (Other)
  Sender: FDA-Public Use
  Company Number: JP-2011-12645

PATIENT
  Age: 81 Year
  Sex: Male

DRUGS (1)
  1. PLETAL [Suspect]
     Indication: LACUNAR INFARCTION
     Dosage: 100 MG MILLIGRAM(S), QD, ORAL
     Route: 048
     Dates: start: 20040412, end: 20040424

REACTIONS (7)
  - CARDIAC MURMUR [None]
  - PALPITATIONS [None]
  - HAEMOGLOBIN INCREASED [None]
  - HAEMATOCRIT INCREASED [None]
  - EMPHYSEMA [None]
  - TACHYCARDIA [None]
  - PO2 DECREASED [None]
